FAERS Safety Report 15866536 (Version 3)
Quarter: 2019Q2

REPORT INFORMATION
  Report Type: Spontaneous
  Country: US (occurrence: US)
  Receive Date: 20190125
  Receipt Date: 20190530
  Transmission Date: 20190711
  Serious: No
  Sender: FDA-Public Use
  Company Number: US-PFIZER INC-2019019510

PATIENT
  Age: 54 Year
  Sex: Male
  Weight: 86.18 kg

DRUGS (3)
  1. LYRICA [Suspect]
     Active Substance: PREGABALIN
     Indication: NEUROPATHY PERIPHERAL
     Dosage: 50 MG, FOUR TIMES A DAY
     Route: 048
     Dates: start: 201810
  2. LYRICA [Suspect]
     Active Substance: PREGABALIN
     Dosage: 50 MG, TWICE A DAY (1 CAPSULE IN THE MORNING AND AFTERNOON)
     Route: 048
     Dates: start: 20190111
  3. LYRICA [Suspect]
     Active Substance: PREGABALIN
     Dosage: 100 MG, ONCE A DAY (1 CAPSULE AT BEDTIME)
     Route: 048
     Dates: start: 20190111

REACTIONS (4)
  - Product use in unapproved indication [Unknown]
  - Abnormal dreams [Recovered/Resolved]
  - Off label use [Unknown]
  - Paraesthesia [Recovering/Resolving]

NARRATIVE: CASE EVENT DATE: 201810
